FAERS Safety Report 7934305-4 (Version None)
Quarter: 2011Q4

REPORT INFORMATION
  Report Type: 
  Country: None (occurrence: None)
  Receive Date: 20111122
  Receipt Date: 20111117
  Transmission Date: 20120403
  Serious: Yes (Other)
  Sender: FDA-Public Use
  Company Number: US-GLAXOSMITHKLINE-A0953741A

PATIENT
  Age: 69 Year
  Sex: Female

DRUGS (9)
  1. ARZERRA [Suspect]
     Indication: CHRONIC LYMPHOCYTIC LEUKAEMIA
     Route: 042
     Dates: start: 20111012
  2. NAPROSYN [Concomitant]
  3. LEXAPRO [Concomitant]
  4. LEVOTHYROXINE SODIUM [Concomitant]
  5. ZINC [Concomitant]
  6. MULTI-VITAMIN [Concomitant]
  7. IBUPROFEN [Concomitant]
  8. HYDROCODONE BITARTRATE [Concomitant]
  9. DETROL [Concomitant]

REACTIONS (11)
  - TINNITUS [None]
  - PYREXIA [None]
  - MICTURITION URGENCY [None]
  - TACHYCARDIA [None]
  - HEADACHE [None]
  - CHILLS [None]
  - THROAT TIGHTNESS [None]
  - LOSS OF CONSCIOUSNESS [None]
  - LYMPHADENOPATHY [None]
  - DIZZINESS [None]
  - ABDOMINAL PAIN UPPER [None]
